FAERS Safety Report 6947045-5 (Version None)
Quarter: 2010Q3

REPORT INFORMATION
  Report Type: 
  Country: None (occurrence: None)
  Receive Date: 20100827
  Receipt Date: 20090824
  Transmission Date: 20110219
  Serious: No
  Sender: FDA-Public Use
  Company Number: US-ABBOTT-09P-163-0594475-00

PATIENT
  Sex: Male
  Weight: 97.61 kg

DRUGS (15)
  1. NIASPAN [Suspect]
     Indication: BLOOD CHOLESTEROL INCREASED
     Dates: start: 20090701
  2. ASPIRIN [Concomitant]
     Indication: CARDIOVASCULAR EVENT PROPHYLAXIS
  3. NEXIUM [Concomitant]
     Indication: GASTROOESOPHAGEAL REFLUX DISEASE
  4. PLAVIX [Concomitant]
     Indication: ARTERIAL BYPASS OPERATION
  5. MULTIPLE VITAMINS [Concomitant]
     Indication: ROUTINE HEALTH MAINTENANCE
  6. TYLENOL-500 [Concomitant]
     Indication: PAIN
  7. ISOSORBIDE MONOTRATE [Concomitant]
     Indication: HYPERTENSION
  8. LIPITOR [Concomitant]
     Indication: BLOOD CHOLESTEROL INCREASED
  9. JENUVIA [Concomitant]
     Indication: DIABETES MELLITUS
  10. DIOVAN [Concomitant]
     Indication: HYPERTENSION
  11. METOPROLOL [Concomitant]
     Indication: ARTERIAL BYPASS OPERATION
  12. METFORMIN [Concomitant]
     Indication: DIABETES MELLITUS
  13. ALPRAZOLAM [Concomitant]
     Indication: PANIC ATTACK
  14. ALLEGRA [Concomitant]
     Indication: HYPERSENSITIVITY
  15. LEXAPRO [Concomitant]
     Indication: DEPRESSION

REACTIONS (4)
  - DIARRHOEA [None]
  - DYSPNOEA EXERTIONAL [None]
  - FLATULENCE [None]
  - HYPERHIDROSIS [None]
